FAERS Safety Report 6738682-1 (Version None)
Quarter: 2010Q2

REPORT INFORMATION
  Report Type: 
  Country: None (occurrence: None)
  Receive Date: 20100524
  Receipt Date: 20100513
  Transmission Date: 20101027
  Serious: Yes (Hospitalization, Other)
  Sender: FDA-Public Use
  Company Number: US-AMGEN-QUU392290

PATIENT
  Sex: Female
  Weight: 59 kg

DRUGS (7)
  1. ENBREL [Suspect]
     Indication: PSORIATIC ARTHROPATHY
     Route: 058
     Dates: start: 20030101
  2. FOSAMAX [Concomitant]
  3. NORVASC [Concomitant]
  4. CALCIUM [Concomitant]
  5. VITAMIN D [Concomitant]
  6. FISH OIL [Concomitant]
  7. ESTROGEN NOS [Concomitant]

REACTIONS (8)
  - BREAST CANCER [None]
  - BREAST PAIN [None]
  - HYSTERECTOMY [None]
  - INTRADUCTAL PAPILLOMA OF BREAST [None]
  - OSTEOARTHRITIS [None]
  - PSORIASIS [None]
  - PSORIATIC ARTHROPATHY [None]
  - SALPINGO-OOPHORECTOMY BILATERAL [None]
